FAERS Safety Report 10763616 (Version 4)
Quarter: 2015Q2

REPORT INFORMATION
  Report Type: Spontaneous
  Country: US (occurrence: US)
  Receive Date: 20150204
  Receipt Date: 20150427
  Transmission Date: 20150821
  Serious: Yes (Other)
  Sender: FDA-Public Use
  Company Number: US-GLAXOSMITHKLINE-US2015GSK011818

PATIENT
  Sex: Female

DRUGS (4)
  1. FLOLAN [Suspect]
     Active Substance: EPOPROSTENOL SODIUM
     Dosage: UNK, CO
     Route: 042
     Dates: start: 20070419
  2. LETAIRIS [Concomitant]
     Active Substance: AMBRISENTAN
  3. FLOLAN [Suspect]
     Active Substance: EPOPROSTENOL SODIUM
     Indication: PULMONARY ARTERIAL HYPERTENSION
     Dosage: 27 NG/KG/MIN CONTINUOUS; CONCENTRATION: 45,000 NG/ML; PUMP RATE: 63 ML/DAY; VIAL STRENGTH: 1.5 MG
     Route: 042
     Dates: start: 20070419
  4. REVATIO [Concomitant]
     Active Substance: SILDENAFIL CITRATE

REACTIONS (8)
  - Nasopharyngitis [Unknown]
  - Flushing [Unknown]
  - Sensory disturbance [Unknown]
  - Upper respiratory tract infection [Unknown]
  - Heart rate increased [Unknown]
  - Blood pressure increased [Unknown]
  - Lower respiratory tract infection [Unknown]
  - Drug dose omission [Unknown]
